FAERS Safety Report 9680050 (Version 1)
Quarter: 2013Q4

REPORT INFORMATION
  Report Type: Spontaneous
  Country: FR (occurrence: FR)
  Receive Date: 20131110
  Receipt Date: 20131110
  Transmission Date: 20140711
  Serious: Yes (Hospitalization)
  Sender: FDA-Public Use
  Company Number: FR-ROCHE-1297921

PATIENT
  Age: 10 Year
  Sex: Male

DRUGS (8)
  1. CELLCEPT [Suspect]
     Indication: PROPHYLAXIS AGAINST GRAFT VERSUS HOST DISEASE
     Route: 042
     Dates: start: 20100712
  2. DESFERAL [Suspect]
     Indication: HAEMOCHROMATOSIS
     Dosage: 100 MG/ML
     Route: 042
     Dates: start: 201204
  3. RAFTON (FRANCE) [Concomitant]
     Dosage: 3 MG
     Route: 048
     Dates: start: 201205
  4. MABTHERA [Concomitant]
     Route: 042
     Dates: start: 201206
  5. KEPPRA [Concomitant]
     Route: 065
     Dates: start: 201205, end: 201207
  6. PROGRAF [Concomitant]
     Route: 065
     Dates: start: 201103
  7. SIMULECT [Concomitant]
     Route: 065
     Dates: start: 201112
  8. CICLOSPORINE [Concomitant]

REACTIONS (1)
  - Pancreatitis necrotising [Unknown]
